FAERS Safety Report 17855434 (Version 3)
Quarter: 2022Q2

REPORT INFORMATION
  Report Type: Spontaneous
  Country: US (occurrence: US)
  Receive Date: 20200603
  Receipt Date: 20220503
  Transmission Date: 20220721
  Serious: No
  Sender: FDA-Public Use
  Company Number: US-PFIZER INC-2020217047

PATIENT
  Age: 71 Year
  Sex: Female

DRUGS (3)
  1. EUCRISA [Suspect]
     Active Substance: CRISABOROLE
     Indication: Psoriasis
     Dosage: UNK UNK, AS NEEDED (APPLY TO ALL AFFECTED AREAS TWICE DAILY AS NEEDED)
     Route: 061
  2. EUCRISA [Suspect]
     Active Substance: CRISABOROLE
     Dosage: UNK, (APPLY THIN LAYER TO AFFECTED AREAS THREE TIMES DAILY)
  3. EUCRISA [Suspect]
     Active Substance: CRISABOROLE
     Dosage: UNK (EVERY OTHER DAY)

REACTIONS (3)
  - Drug ineffective for unapproved indication [Unknown]
  - Off label use [Unknown]
  - Off label use [Unknown]
